FAERS Safety Report 5799347-6 (Version None)
Quarter: 2008Q3

REPORT INFORMATION
  Report Type: 
  Country: None (occurrence: None)
  Receive Date: 20080702
  Receipt Date: 20080623
  Transmission Date: 20090109
  Serious: Yes (Hospitalization)
  Sender: FDA-Public Use
  Company Number: DE-PFIZER INC-2008053166

PATIENT
  Sex: Female

DRUGS (3)
  1. VFEND [Suspect]
     Indication: FUNGAL INFECTION
  2. CHEMOTHERAPY NOS [Concomitant]
  3. ANTIBIOTICS [Concomitant]

REACTIONS (4)
  - SEPSIS [None]
  - SMALL INTESTINAL PERFORATION [None]
  - SMALL INTESTINE GANGRENE [None]
  - TREATMENT FAILURE [None]
